FAERS Safety Report 5626222-X (Version None)
Quarter: 2008Q1

REPORT INFORMATION
  Report Type: 
  Country: None (occurrence: None)
  Receive Date: 20080214
  Receipt Date: 20080204
  Transmission Date: 20080703
  Serious: Yes (Other)
  Sender: FDA-Public Use
  Company Number: B0504667A

PATIENT
  Age: 53 Year
  Sex: Male
  Weight: 88 kg

DRUGS (2)
  1. SEROXAT [Suspect]
     Indication: DRUG USE FOR UNKNOWN INDICATION
     Route: 065
     Dates: start: 20040101
  2. LIPITOR [Suspect]
     Indication: DRUG USE FOR UNKNOWN INDICATION
     Dosage: 20MG PER DAY
     Route: 065

REACTIONS (3)
  - NEOPLASM MALIGNANT [None]
  - RENAL CYST [None]
  - RENAL DISORDER [None]
